FAERS Safety Report 9293670 (Version 4)
Quarter: 2014Q4

REPORT INFORMATION
  Report Type: Spontaneous
  Country: US (occurrence: US)
  Receive Date: 20130516
  Receipt Date: 20141024
  Transmission Date: 20150529
  Serious: No
  Sender: FDA-Public Use
  Company Number: US-009507513-1305USA009944

PATIENT
  Sex: Male
  Weight: 74.83 kg

DRUGS (6)
  1. PROPECIA [Suspect]
     Active Substance: FINASTERIDE
     Dosage: 1 MG, DAILY
     Route: 048
     Dates: start: 20110111, end: 20121227
  2. PROPECIA [Suspect]
     Active Substance: FINASTERIDE
     Indication: ANDROGENETIC ALOPECIA
     Dosage: 1 MG, DAILY
     Route: 048
     Dates: start: 199810, end: 20040121
  3. PROPECIA [Suspect]
     Active Substance: FINASTERIDE
     Dosage: 1 MG, DAILY
     Route: 048
     Dates: start: 20051116, end: 20081208
  4. PROSCAR [Suspect]
     Active Substance: FINASTERIDE
     Indication: ANDROGENETIC ALOPECIA
     Dosage: 2.5 MG, UNK
     Route: 048
     Dates: start: 200709
  5. FINASTERIDE. [Suspect]
     Active Substance: FINASTERIDE
     Dosage: 1 MG, DAILY
     Route: 048
     Dates: start: 20130117, end: 20140728
  6. PROPECIA [Suspect]
     Active Substance: FINASTERIDE
     Dosage: 1 MG, DAILY
     Route: 048
     Dates: start: 20040301, end: 20040903

REACTIONS (22)
  - Ear disorder [Unknown]
  - Wrong technique in drug usage process [Unknown]
  - High risk sexual behaviour [Unknown]
  - Erectile dysfunction [Not Recovered/Not Resolved]
  - Crohn^s disease [Unknown]
  - Sexual dysfunction [Not Recovered/Not Resolved]
  - Painful ejaculation [Unknown]
  - Anogenital warts [Unknown]
  - Anogenital dysplasia [Unknown]
  - Anxiety [Unknown]
  - Fatigue [Unknown]
  - Skin abrasion [Unknown]
  - Prostatitis [Unknown]
  - Dysuria [Unknown]
  - Weight decreased [Unknown]
  - Depression [Unknown]
  - Tinea capitis [Unknown]
  - Proctalgia [Unknown]
  - Off label use [Unknown]
  - Testicular pain [Unknown]
  - Skin disorder [Unknown]
  - Asthma [Not Recovered/Not Resolved]

NARRATIVE: CASE EVENT DATE: 1999
